FAERS Safety Report 10219025 (Version 1)
Quarter: 2014Q2

REPORT INFORMATION
  Report Type: Spontaneous
  Country: US (occurrence: None)
  Receive Date: 20140604
  Receipt Date: 20140604
  Transmission Date: 20141212
  Serious: No
  Sender: FDA-Public Use
  Company Number: None

PATIENT
  Age: 30 Year
  Sex: Male
  Weight: 81.65 kg

DRUGS (1)
  1. LEVOFLOXACIN 500 MG [Suspect]
     Indication: SINUSITIS
     Dosage: 1 DOSE ONCE DAILY TAKEN BY MOUTH
     Route: 048
     Dates: start: 20140528, end: 20140528

REACTIONS (13)
  - Diarrhoea [None]
  - Abasia [None]
  - Panic attack [None]
  - Musculoskeletal stiffness [None]
  - Pain in extremity [None]
  - Middle insomnia [None]
  - Dry mouth [None]
  - Myalgia [None]
  - Muscle twitching [None]
  - Dysstasia [None]
  - Abdominal pain upper [None]
  - Arthralgia [None]
  - Decreased appetite [None]
